FAERS Safety Report 5813621-6 (Version None)
Quarter: 2008Q3

REPORT INFORMATION
  Report Type: 
  Country: None (occurrence: None)
  Receive Date: 20080714
  Receipt Date: 20080630
  Transmission Date: 20090109
  Serious: Yes (Other)
  Sender: FDA-Public Use
  Company Number: 203618

PATIENT
  Age: 63 Year
  Sex: Female

DRUGS (7)
  1. AVONEX [Suspect]
     Indication: MULTIPLE SCLEROSIS
     Dosage: 30 UG; QW; IM
     Route: 030
     Dates: start: 20010911, end: 20061015
  2. DEPAKOTE (CON.) [Concomitant]
  3. ZOLOFT (CON.) [Concomitant]
  4. PROVIGIL (CON.) [Concomitant]
  5. ELAVIL (CON.) [Concomitant]
  6. ESTRADIOL (CON.) [Concomitant]
  7. ESTRADIOL (CON.) [Concomitant]

REACTIONS (1)
  - BREAST CANCER FEMALE [None]
